FAERS Safety Report 14314828 (Version 1)
Quarter: 2017Q4

REPORT INFORMATION
  Report Type: Spontaneous
  Country: DE (occurrence: DE)
  Receive Date: 20171221
  Receipt Date: 20171221
  Transmission Date: 20180321
  Serious: Yes (Hospitalization, Other)
  Sender: FDA-Public Use
  Company Number: DE-ELI_LILLY_AND_COMPANY-DE201710003952

PATIENT
  Age: 38 Year
  Sex: Male

DRUGS (2)
  1. ZYPADHERA [Suspect]
     Active Substance: OLANZAPINE PAMOATE
     Indication: SCHIZOPHRENIA
     Dosage: 210 MG, 2/M
     Route: 030
     Dates: start: 20140721, end: 20171010
  2. ZYPADHERA [Suspect]
     Active Substance: OLANZAPINE PAMOATE
     Indication: DRUG ABUSE
     Dosage: 300 MG, UNKNOWN
     Route: 030
     Dates: start: 20171210

REACTIONS (7)
  - Cardiovascular disorder [Unknown]
  - Post-injection delirium sedation syndrome [Unknown]
  - Agitation [Unknown]
  - Blood ethanol increased [Unknown]
  - Loss of consciousness [Unknown]
  - Somnolence [Unknown]
  - Restlessness [Unknown]

NARRATIVE: CASE EVENT DATE: 20171001
